FAERS Safety Report 8010187-X (Version None)
Quarter: 2011Q4

REPORT INFORMATION
  Report Type: 
  Country: None (occurrence: None)
  Receive Date: 20111221
  Receipt Date: 20111212
  Transmission Date: 20120403
  Serious: Yes (Hospitalization)
  Sender: FDA-Public Use
  Company Number: DSA_48396_2011

PATIENT
  Age: 52 Year
  Sex: Male

DRUGS (1)
  1. DILTIAZEM HYDROCHLORIDE [Suspect]
     Indication: HYPERTENSION
     Dosage: DF ORAL
     Route: 048
     Dates: start: 20100507, end: 20100512

REACTIONS (4)
  - PRURITUS [None]
  - RASH MACULO-PAPULAR [None]
  - INFLAMMATION [None]
  - LEUKOCYTOSIS [None]
